FAERS Safety Report 6318492-X (Version None)
Quarter: 2009Q3

REPORT INFORMATION
  Report Type: 
  Country: None (occurrence: None)
  Receive Date: 20090821
  Receipt Date: 20090819
  Transmission Date: 20100115
  Serious: Yes (Life-Threatening, Hospitalization, Disabling, Other)
  Sender: FDA-Public Use
  Company Number: GB-BRISTOL-MYERS SQUIBB COMPANY-14747588

PATIENT
  Age: 51 Year
  Sex: Male
  Weight: 48 kg

DRUGS (9)
  1. DIDANOSINE [Suspect]
     Indication: HIV INFECTION
     Route: 048
     Dates: start: 19990101, end: 20070101
  2. ASPIRIN [Concomitant]
  3. ATAZANAVIR [Concomitant]
  4. LAMIVUDINE [Concomitant]
  5. METFORMIN HCL [Concomitant]
  6. PRAVASTATIN SODIUM [Concomitant]
  7. PROPRANOLOL [Concomitant]
  8. RANITIDINE [Concomitant]
  9. RITONAVIR [Concomitant]

REACTIONS (4)
  - ASCITES [None]
  - HEPATIC CIRRHOSIS [None]
  - INTESTINAL OBSTRUCTION [None]
  - PERITONEAL FIBROSIS [None]
